FAERS Safety Report 9652182 (Version 1)
Quarter: 2013Q4

REPORT INFORMATION
  Report Type: Spontaneous
  Country: US (occurrence: None)
  Receive Date: 20131025
  Receipt Date: 20131025
  Transmission Date: 20140711
  Serious: Yes (Other)
  Sender: FDA-Public Use
  Company Number: DSU-2013-04898

PATIENT
  Sex: Female

DRUGS (2)
  1. WELCHOL [Suspect]
     Indication: PRODUCT USED FOR UNKNOWN INDICATION
     Route: 048
  2. METFORMIN (METFORMIN) (METFORMIN) [Concomitant]

REACTIONS (2)
  - Breast cancer female [None]
  - Therapeutic response unexpected [None]
